FAERS Safety Report 8982904 (Version 3)
Quarter: 2013Q2

REPORT INFORMATION
  Report Type: Spontaneous
  Country: IT (occurrence: IT)
  Receive Date: 20121224
  Receipt Date: 20130501
  Transmission Date: 20140414
  Serious: Yes (Hospitalization)
  Sender: FDA-Public Use
  Company Number: IT-PFIZER INC-2012316364

PATIENT
  Age: 34 Year
  Sex: Female

DRUGS (3)
  1. LANSOX [Suspect]
     Indication: INTENTIONAL OVERDOSE
     Dosage: 10 CAPSULES (30 MG), SINGLE
     Route: 048
     Dates: start: 20121201
  2. TRANEXAMIC ACID [Suspect]
     Indication: INTENTIONAL OVERDOSE
     Dosage: 30 UNIT DOSES IN TOTAL
     Route: 048
     Dates: start: 20121201
  3. LUCEN [Suspect]
     Indication: INTENTIONAL OVERDOSE
     Dosage: 5 TABLETS (40 MG) IN TOTAL
     Route: 048
     Dates: start: 20121201

REACTIONS (2)
  - Drug abuse [Recovered/Resolved]
  - Sopor [Recovered/Resolved]
